FAERS Safety Report 8071486-9 (Version None)
Quarter: 2012Q1

REPORT INFORMATION
  Report Type: 
  Country: None (occurrence: None)
  Receive Date: 20120125
  Receipt Date: 20120120
  Transmission Date: 20120608
  Serious: Yes (Death)
  Sender: FDA-Public Use
  Company Number: US-CELGENEUS-163-21880-12012193

PATIENT
  Sex: Male

DRUGS (9)
  1. DEXAMETHASONE [Concomitant]
     Route: 065
     Dates: start: 20070401, end: 20071201
  2. DEXAMETHASONE [Concomitant]
     Route: 065
     Dates: start: 20090701, end: 20100901
  3. REVLIMID [Suspect]
     Dosage: 15 MILLIGRAM
     Route: 048
     Dates: start: 20100201, end: 20100901
  4. DEXAMETHASONE [Concomitant]
     Route: 065
     Dates: start: 20110329
  5. REVLIMID [Suspect]
     Indication: MULTIPLE MYELOMA
     Dosage: 25 MILLIGRAM
     Route: 048
     Dates: start: 20070404, end: 20071201
  6. ASPIRIN [Concomitant]
     Dosage: 325 MILLIGRAM
     Route: 065
     Dates: start: 20070404
  7. VELCADE [Concomitant]
     Route: 065
     Dates: start: 20110329
  8. REVLIMID [Suspect]
     Dosage: 10 MILLIGRAM
     Route: 048
     Dates: start: 20110101, end: 20110329
  9. REVLIMID [Suspect]
     Dosage: 25 MILLIGRAM
     Route: 048
     Dates: start: 20090701

REACTIONS (3)
  - DIARRHOEA [None]
  - NEUTROPENIA [None]
  - MULTIPLE MYELOMA [None]
